FAERS Safety Report 16847747 (Version 2)
Quarter: 2019Q4

REPORT INFORMATION
  Report Type: Spontaneous
  Country: US (occurrence: US)
  Receive Date: 20190924
  Receipt Date: 20191222
  Transmission Date: 20200122
  Serious: No
  Sender: FDA-Public Use
  Company Number: US-ACORDA-ACO_160973_2019

PATIENT
  Age: 62 Year
  Sex: Male

DRUGS (3)
  1. CARBIDOPA LEVODOPA [Concomitant]
     Active Substance: CARBIDOPA\LEVODOPA
     Indication: PRODUCT USED FOR UNKNOWN INDICATION
     Dosage: UNK
     Route: 065
  2. INBRIJA [Suspect]
     Active Substance: LEVODOPA
     Dosage: 42 MILLIGRAM, PRN (INHALE CONTENTS OF TWO CAPSULES UP TO FIVE TIMES PER DAY)
  3. INBRIJA [Suspect]
     Active Substance: LEVODOPA
     Indication: PARKINSON^S DISEASE
     Dosage: 42 MILLIGRAM, PRN (INHALE CONTENTS OF TWO CAPSULES UP TO FIVE TIMES PER DAY)
     Dates: start: 20190830, end: 20190911

REACTIONS (8)
  - Dyspnoea [Recovered/Resolved]
  - Hypokinesia [Unknown]
  - Drug ineffective [Recovered/Resolved]
  - Device difficult to use [Recovered/Resolved]
  - Pharyngeal swelling [Recovered/Resolved]
  - Adverse event [Unknown]
  - Device issue [Recovered/Resolved]
  - Dysgraphia [Not Recovered/Not Resolved]

NARRATIVE: CASE EVENT DATE: 20190809
